FAERS Safety Report 23226952 (Version 1)
Quarter: 2023Q4

REPORT INFORMATION
  Report Type: Spontaneous
  Country: ES (occurrence: ES)
  Receive Date: 20231124
  Receipt Date: 20231124
  Transmission Date: 20240110
  Serious: Yes (Other)
  Sender: FDA-Public Use
  Company Number: ES-AMGEN-ESPSP2022230284

PATIENT
  Age: 26 Year
  Sex: Male

DRUGS (2)
  1. ADALIMUMAB [Suspect]
     Active Substance: ADALIMUMAB\ISOPROPYL ALCOHOL
     Indication: Hidradenitis
     Dosage: UNK
     Route: 065
  2. INFLIXIMAB [Concomitant]
     Active Substance: INFLIXIMAB
     Dosage: UNK
     Route: 065

REACTIONS (5)
  - Phlyctenular keratoconjunctivitis [Unknown]
  - Hidradenitis [Unknown]
  - Treatment noncompliance [Unknown]
  - Staphylococcal skin infection [Unknown]
  - Alopecia [Unknown]
